FAERS Safety Report 7259368-3 (Version None)
Quarter: 2011Q1

REPORT INFORMATION
  Report Type: 
  Country: None (occurrence: None)
  Receive Date: 20110129
  Receipt Date: 20100825
  Transmission Date: 20110831
  Serious: No
  Sender: FDA-Public Use
  Company Number: US-ABBOTT-10P-163-0666016-00

PATIENT
  Age: 53 Year
  Sex: Female

DRUGS (5)
  1. SILINDAC [Concomitant]
     Indication: PRODUCT USED FOR UNKNOWN INDICATION
  2. DARVOCET-N 100 [Concomitant]
     Indication: PAIN
     Dosage: AS NEEDED
  3. HUMIRA [Suspect]
     Indication: PSORIATIC ARTHROPATHY
     Route: 058
     Dates: start: 20100601
  4. FLEXERIL [Concomitant]
     Indication: PRODUCT USED FOR UNKNOWN INDICATION
     Dosage: HAS NOT FILLED PRESCRIPTION YET
  5. PREDNISONE [Concomitant]
     Indication: PRODUCT USED FOR UNKNOWN INDICATION
     Dosage: OFF AND ON

REACTIONS (3)
  - INJECTION SITE PAIN [None]
  - CONSTIPATION [None]
  - INJECTION SITE HAEMORRHAGE [None]
